FAERS Safety Report 9630646 (Version 1)
Quarter: 2013Q4

REPORT INFORMATION
  Report Type: Spontaneous
  Country: US (occurrence: None)
  Receive Date: 20131016
  Receipt Date: 20131016
  Transmission Date: 20140711
  Serious: Yes (Life-Threatening, Hospitalization)
  Sender: FDA-Public Use
  Company Number: None

PATIENT
  Age: 83 Year
  Sex: Female

DRUGS (1)
  1. WARFARIN [Suspect]
     Indication: COAGULOPATHY
     Dosage: 1 TABLET 5 TIMES PER WEEK, ORAL
     Route: 048
     Dates: start: 20130727, end: 20131014

REACTIONS (1)
  - International normalised ratio increased [None]
